FAERS Safety Report 10252347 (Version 1)
Quarter: 2014Q2

REPORT INFORMATION
  Report Type: Spontaneous
  Country: BR (occurrence: None)
  Receive Date: 20140619
  Receipt Date: 20140619
  Transmission Date: 20141212
  Serious: Yes (Hospitalization)
  Sender: FDA-Public Use
  Company Number: 2014HINLIT0545

PATIENT
  Age: 32 Year
  Sex: Female

DRUGS (7)
  1. LOPINAVIR + RITONAVIR [Suspect]
     Indication: HIV INFECTION
  2. ORMIGREIN [Suspect]
     Indication: MIGRAINE
     Dosage: 1 MG, 100 MG, 220 MG, 87.5 MCG, 12.5 MCG/6 CAPSULES/DAY, UKNOWN
  3. ZIDOVUDINE/LAMIVUDINE(ZIDOVUDINE/LAMIVUDINE) [Concomitant]
  4. TRIMETHOPRIM-SULFAMETHOXAZOLE [Concomitant]
  5. LAMIVUDINE(LAIVUDINE) [Concomitant]
  6. NEVIRAPINE(NEVIRAPINE) [Concomitant]
  7. ZIDOVUDINE(ZIDOVUDINE) [Concomitant]

REACTIONS (10)
  - Drug interaction [None]
  - Headache [None]
  - Arthralgia [None]
  - Cyanosis [None]
  - Cold sweat [None]
  - Pulse absent [None]
  - Therapeutic response decreased [None]
  - Necrosis [None]
  - Peripheral ischaemia [None]
  - Foot amputation [None]
